FAERS Safety Report 14631140 (Version 3)
Quarter: 2018Q2

REPORT INFORMATION
  Report Type: Report from Study
  Country: JP (occurrence: JP)
  Receive Date: 20180313
  Receipt Date: 20180606
  Transmission Date: 20180711
  Serious: Yes (Disabling, Other)
  Sender: FDA-Public Use
  Company Number: JP-SA-2017SA206584

PATIENT
  Age: 60 Year
  Sex: Male
  Weight: 60 kg

DRUGS (10)
  1. DUOTRAV COMBINATION [Concomitant]
     Active Substance: TIMOLOL MALEATE\TRAVOPROST
     Indication: GLAUCOMA
     Dosage: UNK
     Route: 047
  2. MUCOSTA [Concomitant]
     Active Substance: REBAMIPIDE
     Indication: PEPTIC ULCER
     Dosage: 300 MG, QD
     Route: 048
  3. THYRADIN S [Concomitant]
     Active Substance: LEVOTHYROXINE SODIUM
     Indication: PRODUCT USED FOR UNKNOWN INDICATION
     Dosage: 100 MG, QD
     Route: 048
  4. MUCOSTA [Concomitant]
     Active Substance: REBAMIPIDE
     Indication: PROPHYLAXIS AGAINST GASTROINTESTINAL ULCER
  5. DAONIL TAB 1.25MG [Concomitant]
     Indication: DIABETES MELLITUS
     Dosage: 2.5 MG, QD
     Route: 048
  6. VANDETANIB. [Suspect]
     Active Substance: VANDETANIB
     Indication: MEDULLARY THYROID CANCER
     Dosage: 300 MG, QD
     Route: 048
     Dates: start: 20170831, end: 20171015
  7. VANDETANIB. [Suspect]
     Active Substance: VANDETANIB
     Dosage: 200 MG, QD
     Route: 048
     Dates: start: 20171016, end: 20171119
  8. PYDOXAL [Concomitant]
     Active Substance: PYRIDOXAL
     Indication: PROPHYLAXIS
     Dosage: 60 MG, QD
     Route: 048
     Dates: start: 20170831, end: 20171119
  9. LOXONIN [Concomitant]
     Active Substance: LOXOPROFEN SODIUM
     Indication: CANCER PAIN
     Dosage: 180 MG, QD
     Route: 048
  10. GLACTIV [Concomitant]
     Active Substance: SITAGLIPTIN
     Indication: DIABETES MELLITUS
     Dosage: 50 MG, QD
     Route: 048

REACTIONS (5)
  - Electrocardiogram QT prolonged [Recovered/Resolved]
  - Hemiplegia [Recovering/Resolving]
  - Thalamus haemorrhage [Recovered/Resolved with Sequelae]
  - Diarrhoea [Recovered/Resolved]
  - Hypertension [Recovering/Resolving]

NARRATIVE: CASE EVENT DATE: 20170914
